FAERS Safety Report 9980240 (Version 3)
Quarter: 2014Q2

REPORT INFORMATION
  Report Type: Spontaneous
  Country: GB (occurrence: None)
  Receive Date: 20140305
  Receipt Date: 20140523
  Transmission Date: 20141212
  Serious: Yes (Death, Life-Threatening)
  Sender: FDA-Public Use
  Company Number: AUR-APL-2014-02164

PATIENT
  Age: 81 Year
  Sex: Male
  Weight: 76.15 kg

DRUGS (6)
  1. AMOXICILLIN [Suspect]
     Indication: URINARY TRACT INFECTION
     Dosage: 1500 MG (500 MG, 3 IN 1 D),ORAL
     Route: 048
     Dates: start: 20131214, end: 20131216
  2. FERROUS SULPHATE [Suspect]
     Indication: PRODUCT USED FOR UNKNOWN INDICATION
     Dosage: 600 MG (200 MG, 3 IN 1 D),ORAL
     Route: 048
     Dates: end: 20131228
  3. LACTULOSE [Suspect]
     Indication: PRODUCT USED FOR UNKNOWN INDICATION
     Dosage: 30 ML (15 ML, 2 IN 1 D),ORAL
     Route: 048
     Dates: end: 20131228
  4. LANSOPRAZOLE [Suspect]
     Indication: PRODUCT USED FOR UNKNOWN INDICATION
     Dosage: (30 MG, 1 IN 1 D)
     Route: 048
     Dates: end: 20131228
  5. SENNA (SENNA ALEXANDRIA) [Suspect]
     Indication: PRODUCT USED FOR UNKNOWN INDICATION
     Dosage: (15 MG, 1 IN 1 D)
     Route: 048
     Dates: end: 20131223
  6. TAZOCIN [Suspect]
     Indication: PNEUMONIA
     Route: 042
     Dates: start: 20131216, end: 20131221

REACTIONS (2)
  - Clostridium difficile colitis [None]
  - Death [None]
